FAERS Safety Report 6142211-3 (Version None)
Quarter: 2009Q2

REPORT INFORMATION
  Report Type: 
  Country: None (occurrence: None)
  Receive Date: 20090403
  Receipt Date: 20071115
  Transmission Date: 20091009
  Serious: Yes (Hospitalization, Other)
  Sender: FDA-Public Use
  Company Number: US-ASTRAZENECA-2007UW10982

PATIENT
  Age: 39 Year
  Sex: Female

DRUGS (27)
  1. SEROQUEL [Suspect]
     Indication: SLEEP DISORDER
     Dosage: 100-200 MG
     Route: 048
     Dates: start: 20011001, end: 20070711
  2. SEROQUEL [Suspect]
     Indication: DEPRESSION
     Dosage: 100-200 MG
     Route: 048
     Dates: start: 20011001, end: 20070711
  3. SEROQUEL [Suspect]
     Indication: ANXIETY
     Dosage: 100-200 MG
     Route: 048
     Dates: start: 20011001, end: 20070711
  4. LANTUS [Concomitant]
  5. NOVOLOG [Concomitant]
  6. LASIX [Concomitant]
  7. ASPIRIN [Concomitant]
  8. ALTACE [Concomitant]
  9. XANAX [Concomitant]
  10. AMBIEN [Concomitant]
  11. WELLBUTRIN [Concomitant]
  12. PROVIGIL [Concomitant]
  13. FLEXERIL [Concomitant]
  14. TOPAMAX [Concomitant]
  15. LUNESTA [Concomitant]
  16. TRILEPTAL [Concomitant]
  17. PROZAC [Concomitant]
  18. AVANDIA [Concomitant]
  19. CYMBALTA [Concomitant]
  20. FROVA [Concomitant]
  21. DIAZEPAM [Concomitant]
  22. NEXIUM [Concomitant]
  23. KYTRIL [Concomitant]
  24. TYLENOL [Concomitant]
  25. PHENERGAN [Concomitant]
  26. ATIVAN [Concomitant]
  27. PROTONIX [Concomitant]

REACTIONS (39)
  - ABDOMINAL PAIN [None]
  - ARTHRALGIA [None]
  - BREAST MASS [None]
  - CHEST PAIN [None]
  - CONTUSION [None]
  - COUGH [None]
  - DEPRESSED LEVEL OF CONSCIOUSNESS [None]
  - DIABETIC KETOACIDOSIS [None]
  - DIARRHOEA [None]
  - DYSPNOEA [None]
  - EAR INFECTION [None]
  - FACTOR V DEFICIENCY [None]
  - FATIGUE [None]
  - FEELING ABNORMAL [None]
  - FLUID OVERLOAD [None]
  - HAEMOPTYSIS [None]
  - HEADACHE [None]
  - HYPERSOMNIA [None]
  - HYPOGLYCAEMIA [None]
  - HYPOKALAEMIA [None]
  - HYPOVOLAEMIA [None]
  - JOINT SPRAIN [None]
  - LEUKOCYTOSIS [None]
  - MIGRAINE [None]
  - MUSCULOSKELETAL PAIN [None]
  - MYALGIA [None]
  - NAUSEA [None]
  - NEUROPATHY PERIPHERAL [None]
  - PAIN [None]
  - PERIARTHRITIS [None]
  - PICKWICKIAN SYNDROME [None]
  - PNEUMONIA ASPIRATION [None]
  - PYREXIA [None]
  - RESPIRATORY FAILURE [None]
  - THROMBOPHLEBITIS SUPERFICIAL [None]
  - TYPE 2 DIABETES MELLITUS [None]
  - URINE OUTPUT INCREASED [None]
  - VISION BLURRED [None]
  - VOMITING [None]
